FAERS Safety Report 12923904 (Version 3)
Quarter: 2017Q1

REPORT INFORMATION
  Report Type: Spontaneous
  Country: US (occurrence: US)
  Receive Date: 20161109
  Receipt Date: 20170104
  Transmission Date: 20170428
  Serious: No
  Sender: FDA-Public Use
  Company Number: US-009507513-1611USA001325

PATIENT
  Age: 30 Year
  Sex: Female
  Weight: 67.12 kg

DRUGS (1)
  1. NEXPLANON [Suspect]
     Active Substance: ETONOGESTREL
     Indication: CONTRACEPTION
     Dosage: 68 MG/ONE ROD PER 3 YEARS
     Route: 059
     Dates: start: 20160623, end: 20161024

REACTIONS (4)
  - Breast swelling [Recovered/Resolved]
  - Swelling face [Recovered/Resolved]
  - Local swelling [Recovered/Resolved]
  - Implant site swelling [Recovered/Resolved]

NARRATIVE: CASE EVENT DATE: 20160630
